FAERS Safety Report 5191750-0 (Version None)
Quarter: 2006Q4

REPORT INFORMATION
  Report Type: 
  Country: None (occurrence: None)
  Receive Date: 20061219
  Receipt Date: 20061206
  Transmission Date: 20070319
  Serious: Yes (Hospitalization)
  Sender: FDA-Public Use
  Company Number: 2006151467

PATIENT
  Age: 48 Year
  Sex: Female
  Weight: 38 kg

DRUGS (2)
  1. SUTENT [Suspect]
     Indication: RENAL CELL CARCINOMA STAGE UNSPECIFIED
     Dosage: 50 MG (50 MG, 1 IN 1 D), ORAL
     Route: 048
     Dates: start: 20061107, end: 20061204
  2. TRAMADOL HCL [Concomitant]

REACTIONS (3)
  - CARDIOTOXICITY [None]
  - EJECTION FRACTION DECREASED [None]
  - ELECTROCARDIOGRAM ST-T CHANGE [None]
